FAERS Safety Report 26094125 (Version 1)
Quarter: 2025Q4

REPORT INFORMATION
  Report Type: Spontaneous
  Country: EU (occurrence: EU)
  Receive Date: 20251126
  Receipt Date: 20251126
  Transmission Date: 20260118
  Serious: Yes (Hospitalization)
  Sender: MYLAN
  Company Number: None

PATIENT
  Age: 24 Year
  Sex: Male

DRUGS (20)
  1. CLOZAPINE [Suspect]
     Active Substance: CLOZAPINE
     Indication: Schizophrenia
     Dosage: 700 MILLIGRAM, QD, 50+200+450 MG
     Dates: start: 20250611
  2. CLOZAPINE [Suspect]
     Active Substance: CLOZAPINE
     Dosage: 700 MILLIGRAM, QD, 50+200+450 MG
     Route: 048
     Dates: start: 20250611
  3. CLOZAPINE [Suspect]
     Active Substance: CLOZAPINE
     Dosage: 700 MILLIGRAM, QD, 50+200+450 MG
     Route: 048
     Dates: start: 20250611
  4. CLOZAPINE [Suspect]
     Active Substance: CLOZAPINE
     Dosage: 700 MILLIGRAM, QD, 50+200+450 MG
     Dates: start: 20250611
  5. LITHIUM CARBONATE [Concomitant]
     Active Substance: LITHIUM CARBONATE
     Indication: Schizophrenia
     Dosage: 900 MILLIGRAM, QD, 300+0+600 MG
     Dates: start: 2024
  6. LITHIUM CARBONATE [Concomitant]
     Active Substance: LITHIUM CARBONATE
     Dosage: 900 MILLIGRAM, QD, 300+0+600 MG
     Route: 048
     Dates: start: 2024
  7. LITHIUM CARBONATE [Concomitant]
     Active Substance: LITHIUM CARBONATE
     Dosage: 900 MILLIGRAM, QD, 300+0+600 MG
     Route: 048
     Dates: start: 2024
  8. LITHIUM CARBONATE [Concomitant]
     Active Substance: LITHIUM CARBONATE
     Dosage: 900 MILLIGRAM, QD, 300+0+600 MG
     Dates: start: 2024
  9. Absenor [Concomitant]
     Indication: Affective disorder
     Dosage: 300 MILLIGRAM, BID, 300+0+300
     Dates: start: 2024
  10. Absenor [Concomitant]
     Dosage: 300 MILLIGRAM, BID, 300+0+300
     Route: 048
     Dates: start: 2024
  11. Absenor [Concomitant]
     Dosage: 300 MILLIGRAM, BID, 300+0+300
     Route: 048
     Dates: start: 2024
  12. Absenor [Concomitant]
     Dosage: 300 MILLIGRAM, BID, 300+0+300
     Dates: start: 2024
  13. SEROQUEL [Concomitant]
     Active Substance: QUETIAPINE FUMARATE
     Indication: Schizophrenia
     Dosage: 200 MILLIGRAM, QD, 0+0+200 MG
     Dates: start: 2025
  14. SEROQUEL [Concomitant]
     Active Substance: QUETIAPINE FUMARATE
     Dosage: 200 MILLIGRAM, QD, 0+0+200 MG
     Route: 048
     Dates: start: 2025
  15. SEROQUEL [Concomitant]
     Active Substance: QUETIAPINE FUMARATE
     Dosage: 200 MILLIGRAM, QD, 0+0+200 MG
     Route: 048
     Dates: start: 2025
  16. SEROQUEL [Concomitant]
     Active Substance: QUETIAPINE FUMARATE
     Dosage: 200 MILLIGRAM, QD, 0+0+200 MG
     Dates: start: 2025
  17. ZYPREXA [Concomitant]
     Active Substance: OLANZAPINE
     Indication: Schizophrenia
     Dosage: 10 MILLIGRAM, QD, AS NEEDED/NECESSARY
     Dates: start: 2024
  18. ZYPREXA [Concomitant]
     Active Substance: OLANZAPINE
     Dosage: 10 MILLIGRAM, QD, AS NEEDED/NECESSARY
     Route: 048
     Dates: start: 2024
  19. ZYPREXA [Concomitant]
     Active Substance: OLANZAPINE
     Dosage: 10 MILLIGRAM, QD, AS NEEDED/NECESSARY
     Route: 048
     Dates: start: 2024
  20. ZYPREXA [Concomitant]
     Active Substance: OLANZAPINE
     Dosage: 10 MILLIGRAM, QD, AS NEEDED/NECESSARY
     Dates: start: 2024

REACTIONS (2)
  - Epilepsy [Recovered/Resolved]
  - Generalised tonic-clonic seizure [Recovered/Resolved]

NARRATIVE: CASE EVENT DATE: 20251023
